FAERS Safety Report 14011743 (Version 1)
Quarter: 2017Q3

REPORT INFORMATION
  Report Type: Spontaneous
  Country: US (occurrence: None)
  Receive Date: 20170926
  Receipt Date: 20170926
  Transmission Date: 20171128
  Serious: Yes (Other)
  Sender: FDA-Public Use
  Company Number: None

PATIENT
  Age: 37 Year
  Sex: Female
  Weight: 90.72 kg

DRUGS (6)
  1. MIRENA [Suspect]
     Active Substance: LEVONORGESTREL
  2. VITAMIN D [Concomitant]
     Active Substance: CHOLECALCIFEROL
  3. VITAMIN B12 [Concomitant]
     Active Substance: CYANOCOBALAMIN
  4. ANTIBIOTICS-NITROFURANTOIN [Concomitant]
  5. IRON [Concomitant]
     Active Substance: IRON
  6. MULTI VITAMINS [Concomitant]
     Active Substance: VITAMINS

REACTIONS (5)
  - Cystitis [None]
  - Dysmenorrhoea [None]
  - Pain [None]
  - Kidney infection [None]
  - Menorrhagia [None]

NARRATIVE: CASE EVENT DATE: 20170401
